FAERS Safety Report 8279008-4 (Version None)
Quarter: 2012Q2

REPORT INFORMATION
  Report Type: 
  Country: None (occurrence: None)
  Receive Date: 20120412
  Receipt Date: 20110620
  Transmission Date: 20120825
  Serious: No
  Sender: FDA-Public Use
  Company Number: US-ASTRAZENECA-2011SE37261

PATIENT
  Age: 64 Year
  Sex: Female

DRUGS (7)
  1. POTASSIUM [Concomitant]
  2. SYNTHROID [Concomitant]
  3. ZANTAC [Concomitant]
  4. NEXIUM [Suspect]
     Indication: GASTROOESOPHAGEAL REFLUX DISEASE
     Route: 048
     Dates: start: 20030101
  5. AMARYL [Concomitant]
  6. METFORMIN HCL [Concomitant]
  7. DIOVAN [Concomitant]

REACTIONS (1)
  - BARRETT'S OESOPHAGUS [None]
